FAERS Safety Report 17717206 (Version 2)
Quarter: 2020Q2

REPORT INFORMATION
  Report Type: Report from Study
  Country: JP (occurrence: JP)
  Receive Date: 20200428
  Receipt Date: 20200501
  Transmission Date: 20200714
  Serious: Yes (Hospitalization, Other)
  Sender: FDA-Public Use
  Company Number: JP-ASTELLAS-2019JP028064

PATIENT
  Age: 61 Year
  Sex: Female
  Weight: 44 kg

DRUGS (13)
  1. ASG-22CE [Suspect]
     Active Substance: ENFORTUMAB VEDOTIN
     Dosage: 1.0 MG/KG, 1 TIME/WEEK, 3 WEEKS ADMINISTRATION 1 WEEK OFF
     Route: 042
     Dates: start: 20191219
  2. MIYA-BM [Concomitant]
     Active Substance: CLOSTRIDIUM BUTYRICUM SPORES STRAIN M-55
     Indication: GASTROINTESTINAL DISORDER
     Dosage: UNK UNK, THRICE DAILY
     Route: 048
     Dates: start: 20180926
  3. EURAX H [Concomitant]
     Indication: RASH
     Dosage: UNK UNK, AS NEEDED
     Route: 061
     Dates: start: 20191128
  4. URSODEOXYCHOLIC ACID [Concomitant]
     Active Substance: URSODIOL
     Indication: HEPATIC FUNCTION ABNORMAL
     Route: 048
     Dates: start: 20191205
  5. RANMARK [Concomitant]
     Active Substance: DENOSUMAB
     Indication: METASTASES TO BONE
     Route: 058
     Dates: start: 20181106
  6. PINORUBIN [PIRARUBICIN] [Concomitant]
     Indication: BLADDER CANCER
     Dosage: UNK UNK, UNKNOWN FREQ. (INTRAVESICAL INJECTION, TOTAL 6 TIMES)
     Route: 043
     Dates: start: 20190907
  7. OXINORM [Concomitant]
     Indication: CANCER PAIN
     Route: 048
     Dates: start: 20180903
  8. OXYCODONE [Concomitant]
     Active Substance: OXYCODONE
     Indication: CANCER PAIN
     Route: 048
     Dates: start: 20180903
  9. REBAMIPIDE [Concomitant]
     Active Substance: REBAMIPIDE
     Indication: GASTROINTESTINAL DISORDER
     Route: 048
     Dates: start: 20180903
  10. BROTIZOLAM [Concomitant]
     Active Substance: BROTIZOLAM
     Indication: INSOMNIA
     Dosage: 0.125 MG, ONCE DAILY
     Route: 048
     Dates: start: 20180908
  11. ASG-22CE [Suspect]
     Active Substance: ENFORTUMAB VEDOTIN
     Indication: TRANSITIONAL CELL CARCINOMA
     Dosage: 1.25 MG/KG, 1 TIME/WEEK, 3 WEEKS ADMINISTRATION 1 WEEK OFF
     Route: 042
     Dates: start: 20191121, end: 20191218
  12. PATANOL [Concomitant]
     Active Substance: OLOPATADINE HYDROCHLORIDE
     Indication: SEASONAL ALLERGY
     Dosage: AS NEEDED, UNKNOWN FREQ.
     Route: 047
     Dates: start: 20200213
  13. POLARAMINE [Concomitant]
     Active Substance: DEXCHLORPHENIRAMINE MALEATE
     Indication: RASH
     Route: 048
     Dates: start: 20191205

REACTIONS (2)
  - Hepatic function abnormal [Recovered/Resolved]
  - Calculus bladder [Recovered/Resolved]

NARRATIVE: CASE EVENT DATE: 20191205
